FAERS Safety Report 4284787-7 (Version None)
Quarter: 2004Q1

REPORT INFORMATION
  Report Type: 
  Country: None (occurrence: None)
  Receive Date: 20040130
  Receipt Date: 20040130
  Transmission Date: 20041129
  Serious: Yes (Hospitalization)
  Sender: FDA-Public Use
  Company Number: None

PATIENT
  Age: 52 Year
  Sex: Female
  Weight: 85 kg

DRUGS (2)
  1. CPT-11 [Suspect]
     Indication: COLON CANCER METASTATIC
  2. EXISULIND [Suspect]
     Indication: COLON CANCER METASTATIC

REACTIONS (3)
  - ABSCESS [None]
  - CARCINOMA [None]
  - PYREXIA [None]
